FAERS Safety Report 19685657 (Version 1)
Quarter: 2021Q3

REPORT INFORMATION
  Report Type: Spontaneous
  Country: CN (occurrence: CN)
  Receive Date: 20210811
  Receipt Date: 20210811
  Transmission Date: 20211014
  Serious: Yes (Life-Threatening, Hospitalization, Other)
  Sender: FDA-Public Use
  Company Number: CN-SEBELA IRELAND LIMITED-2021SEB00099

PATIENT
  Age: 3 Year
  Sex: Male

DRUGS (1)
  1. ATROPINE. [Suspect]
     Active Substance: ATROPINE
     Dosage: INGESTED 35 TABLETS EACH CONTAINING 2.5 MG DIPHENOXYLATE AND 0.025 MG ATROPINE
     Route: 048
     Dates: start: 20190512

REACTIONS (6)
  - Focal dyscognitive seizures [Recovered/Resolved]
  - Encephalopathy [Recovered/Resolved]
  - Accidental overdose [Recovered/Resolved]
  - Respiratory arrest [Recovered/Resolved]
  - Generalised tonic-clonic seizure [Recovered/Resolved]
  - Status epilepticus [Recovered/Resolved]

NARRATIVE: CASE EVENT DATE: 201905
